FAERS Safety Report 25073588 (Version 3)
Quarter: 2025Q2

REPORT INFORMATION
  Report Type: Spontaneous
  Country: JP (occurrence: JP)
  Receive Date: 20250313
  Receipt Date: 20250407
  Transmission Date: 20250716
  Serious: Yes (Hospitalization)
  Sender: SUNOVION
  Company Number: JP-SMPA-2025SPA002827

PATIENT

DRUGS (7)
  1. RELUGOLIX [Suspect]
     Active Substance: RELUGOLIX
     Indication: Uterine leiomyoma
     Route: 048
     Dates: start: 20241011, end: 20241027
  2. RELUGOLIX [Suspect]
     Active Substance: RELUGOLIX
     Route: 048
     Dates: start: 20241123, end: 20250326
  3. FERINJECT [Concomitant]
     Active Substance: FERRIC CARBOXYMALTOSE
     Dosage: 500 MG, QD
     Route: 041
     Dates: start: 20241011, end: 20241011
  4. Fesin [Concomitant]
     Dosage: 120 MG, QD
     Route: 042
     Dates: start: 20241015, end: 20241018
  5. Adona [Concomitant]
     Dosage: 200 MG, QD
     Route: 041
     Dates: start: 20241015, end: 20241017
  6. TRANSAMIN [Concomitant]
     Active Substance: TRANEXAMIC ACID
     Dosage: 2 G, QD
     Route: 041
     Dates: start: 20241015, end: 20241017
  7. SODIUM FERROUS CITRATE [Concomitant]
     Active Substance: SODIUM FERROUS CITRATE
     Dosage: 200 MG, QD
     Route: 065
     Dates: start: 20241019, end: 20241202

REACTIONS (2)
  - Malaise [Unknown]
  - Therapeutic response decreased [Unknown]
